FAERS Safety Report 7425619-5 (Version None)
Quarter: 2011Q2

REPORT INFORMATION
  Report Type: 
  Country: None (occurrence: None)
  Receive Date: 20110412
  Receipt Date: 20110405
  Transmission Date: 20111010
  Serious: Yes (Other)
  Sender: FDA-Public Use
  Company Number: ZYD-11-AE-061

PATIENT
  Age: 25 Year
  Sex: Female

DRUGS (4)
  1. ZYRTEC [Concomitant]
  2. RIBAVIRIN [Suspect]
     Dates: start: 20090612, end: 20100514
  3. PRILOSEC [Concomitant]
  4. PEGASYS [Suspect]
     Dosage: 80MCG - WEEKLY - IM
     Route: 030
     Dates: start: 20090612, end: 20100507

REACTIONS (4)
  - PREGNANCY [None]
  - CAESAREAN SECTION [None]
  - PREMATURE BABY [None]
  - DRUG EXPOSURE DURING PREGNANCY [None]
